FAERS Safety Report 4367651-4 (Version None)
Quarter: 2004Q2

REPORT INFORMATION
  Report Type: 
  Country: None (occurrence: None)
  Receive Date: 20040601
  Receipt Date: 20020212
  Transmission Date: 20050107
  Serious: Yes (Hospitalization, Disabling)
  Sender: FDA-Public Use
  Company Number: US-GLAXOSMITHKLINE-A0359119A

PATIENT
  Age: 39 Year
  Sex: Female
  Weight: 91.4 kg

DRUGS (4)
  1. LOTRONEX [Suspect]
     Indication: IRRITABLE BOWEL SYNDROME
     Route: 048
     Dates: start: 20000301, end: 20001101
  2. CLARITIN [Concomitant]
  3. SEREVENT [Concomitant]
  4. PREVACID [Concomitant]

REACTIONS (7)
  - ABDOMINAL DISTENSION [None]
  - ABDOMINAL PAIN [None]
  - DIARRHOEA [None]
  - ENDOMETRIAL HYPERTROPHY [None]
  - HAEMATOCHEZIA [None]
  - ILEUS PARALYTIC [None]
  - OVARIAN CYST [None]
